FAERS Safety Report 25223034 (Version 2)
Quarter: 2025Q2

REPORT INFORMATION
  Report Type: Spontaneous
  Country: US (occurrence: US)
  Receive Date: 20250422
  Receipt Date: 20250512
  Transmission Date: 20250716
  Serious: No
  Sender: ALVOGEN
  Company Number: US-ALVOGEN-2025097581

PATIENT
  Sex: Female

DRUGS (3)
  1. FENTANYL [Suspect]
     Active Substance: FENTANYL
     Indication: Pain
     Dates: start: 2024
  2. FENTANYL [Suspect]
     Active Substance: FENTANYL
     Indication: Pain
     Dates: start: 2025
  3. FENTANYL [Concomitant]
     Active Substance: FENTANYL
     Indication: Pain

REACTIONS (5)
  - Withdrawal syndrome [Unknown]
  - Device malfunction [Unknown]
  - Device adhesion issue [Unknown]
  - Wrong technique in device usage process [Unknown]
  - Therapeutic product effect variable [Unknown]
